FAERS Safety Report 4407515-0 (Version None)
Quarter: 2004Q3

REPORT INFORMATION
  Report Type: 
  Country: None (occurrence: None)
  Receive Date: 20040721
  Receipt Date: 20040708
  Transmission Date: 20050211
  Serious: No
  Sender: FDA-Public Use
  Company Number: 04H-167-0267057-00

PATIENT

DRUGS (6)
  1. HEPARIN SODIUM [Suspect]
     Indication: RENAL TRANSPLANT
     Dosage: 5000 UNIT, ONCE, INTRAVENOUS/JUST BEFORE VASCULAR CLAMPING
  2. HEPARIN SODIUM [Suspect]
     Indication: THROMBOSIS PROPHYLAXIS
     Dosage: 5000 UNIT, ONCE, INTRAVENOUS/JUST BEFORE VASCULAR CLAMPING
  3. CYCLOSPORINE [Concomitant]
  4. METHYLPREDNISOLONE [Concomitant]
  5. PREDNISONE [Concomitant]
  6. AZATHIOPRINE [Concomitant]

REACTIONS (3)
  - COMPLICATIONS OF TRANSPLANT SURGERY [None]
  - PERIRENAL HAEMATOMA [None]
  - RENAL VEIN THROMBOSIS [None]
